FAERS Safety Report 5575936-9 (Version None)
Quarter: 2007Q4

REPORT INFORMATION
  Report Type: 
  Country: None (occurrence: None)
  Receive Date: 20071226
  Receipt Date: 20071210
  Transmission Date: 20080405
  Serious: Yes (Death, Hospitalization, Other)
  Sender: FDA-Public Use
  Company Number: 100#08#2007-05297

PATIENT
  Age: 30 Year
  Sex: Female

DRUGS (3)
  1. SULFAMETHOXAZOLE AND TRIMETHOPRIM [Suspect]
     Indication: ANTIFUNGAL PROPHYLAXIS
     Route: 048
  2. PHENYTOIN [Suspect]
     Indication: DRUG USE FOR UNKNOWN INDICATION
  3. TEMOZOLOMIDE [Suspect]
     Indication: GLIOBLASTOMA MULTIFORME
     Dosage: 75 MG/M2

REACTIONS (4)
  - APLASTIC ANAEMIA [None]
  - BONE MARROW FAILURE [None]
  - GINGIVAL BLEEDING [None]
  - PANCYTOPENIA [None]
